FAERS Safety Report 6615519-2 (Version None)
Quarter: 2010Q1

REPORT INFORMATION
  Report Type: 
  Country: None (occurrence: None)
  Receive Date: 20100305
  Receipt Date: 20100201
  Transmission Date: 20100710
  Serious: No
  Sender: FDA-Public Use
  Company Number: US-BAYER-201011575BCC

PATIENT
  Age: 44 Year
  Sex: Male
  Weight: 83 kg

DRUGS (5)
  1. ALEVE (CAPLET) [Suspect]
     Indication: ARTHRALGIA
     Dosage: TOTAL DAILY DOSE: 440 MG  UNIT DOSE: 220 MG
     Route: 048
     Dates: start: 20080101
  2. WELLBUTRIN [Concomitant]
     Route: 065
  3. ZYRTEC [Concomitant]
     Route: 065
  4. CRESTOR [Concomitant]
     Route: 065
  5. XANAX [Concomitant]
     Route: 065

REACTIONS (1)
  - PALPITATIONS [None]
